FAERS Safety Report 5398294-1 (Version None)
Quarter: 2007Q3

REPORT INFORMATION
  Report Type: 
  Country: None (occurrence: None)
  Receive Date: 20070726
  Receipt Date: 20070723
  Transmission Date: 20080115
  Serious: Yes (Disabling)
  Sender: FDA-Public Use
  Company Number: US-MERCK-0707USA03824

PATIENT
  Age: 70 Year
  Sex: Male

DRUGS (2)
  1. ZETIA [Suspect]
     Indication: BLOOD CHOLESTEROL INCREASED
     Route: 048
  2. ZOCOR [Concomitant]
     Route: 065

REACTIONS (2)
  - MYOPATHY [None]
  - MYOSITIS [None]
